FAERS Safety Report 15802107 (Version 1)
Quarter: 2019Q1

REPORT INFORMATION
  Report Type: Spontaneous
  Country: US (occurrence: US)
  Receive Date: 20190108
  Receipt Date: 20190108
  Transmission Date: 20190417
  Serious: Yes (Other)
  Sender: FDA-Public Use
  Company Number: None

PATIENT
  Age: 59 Year
  Sex: Male
  Weight: 121 kg

DRUGS (1)
  1. GAMUNEX-C [Suspect]
     Active Substance: HUMAN IMMUNOGLOBULIN G
     Indication: CHRONIC INFLAMMATORY DEMYELINATING POLYRADICULONEUROPATHY
     Dosage: ?          OTHER FREQUENCY:X2 DAYS, Q2WKS;?
     Route: 041
     Dates: start: 20181227, end: 20181227

REACTIONS (3)
  - Burning sensation [None]
  - Pruritus [None]
  - Infusion related reaction [None]

NARRATIVE: CASE EVENT DATE: 20181227
